FAERS Safety Report 18751596 (Version 2)
Quarter: 2021Q1

REPORT INFORMATION
  Report Type: Spontaneous
  Country: US (occurrence: US)
  Receive Date: 20210118
  Receipt Date: 20210301
  Transmission Date: 20210419
  Serious: Yes (Death)
  Sender: FDA-Public Use
  Company Number: US-ROCHE-2751633

PATIENT
  Age: 74 Year
  Sex: Female
  Weight: 62.1 kg

DRUGS (15)
  1. MUCOMYST [Concomitant]
     Active Substance: ACETYLCYSTEINE
     Indication: DYSPNOEA
     Dosage: 100 MG/ML (10 %)?EVERY 4 HOUR AS NEEDED
     Dates: start: 20200114, end: 20210113
  2. DEMADEX [Concomitant]
     Active Substance: TORSEMIDE
     Route: 048
     Dates: start: 20200616, end: 20210218
  3. ASTELIN [Concomitant]
     Active Substance: AZELASTINE HYDROCHLORIDE
     Dosage: 137 MCG (1 %)?2 SPRAY
     Dates: start: 20200727
  4. PROTONIX [Concomitant]
     Active Substance: PANTOPRAZOLE SODIUM
     Route: 048
     Dates: start: 20200827, end: 20210218
  5. KLOR?CON [Concomitant]
     Active Substance: POTASSIUM CHLORIDE
     Dosage: 10 MCQ BY MOUTH
     Route: 048
     Dates: start: 20200818, end: 20210218
  6. SALINE [Concomitant]
     Active Substance: SODIUM CHLORIDE
     Route: 045
  7. AMBIEN [Concomitant]
     Active Substance: ZOLPIDEM TARTRATE
     Dosage: NIGHTLY
     Route: 048
     Dates: start: 20200106
  8. LETAIRIS [Concomitant]
     Active Substance: AMBRISENTAN
     Route: 048
     Dates: start: 20200827, end: 20210218
  9. FLEXERIL [Concomitant]
     Active Substance: CYCLOBENZAPRINE HYDROCHLORIDE
     Route: 048
     Dates: start: 20200818
  10. PEPCID [Concomitant]
     Active Substance: FAMOTIDINE
     Route: 048
  11. DOXYCYCLINE. [Concomitant]
     Active Substance: DOXYCYCLINE
  12. PULMICORT TURBUHALER [Concomitant]
     Active Substance: BUDESONIDE
     Dosage: 0.5 MG/ 2 ML?USE IN NASAL RINSE SOLUTION DAILY
     Dates: start: 20210104, end: 20210218
  13. SINGULAIR [Concomitant]
     Active Substance: MONTELUKAST SODIUM
     Indication: NASAL INFLAMMATION
     Dosage: NIGHTLY
     Route: 048
     Dates: start: 20200801
  14. OXYGEN. [Concomitant]
     Active Substance: OXYGEN
  15. ESBRIET [Suspect]
     Active Substance: PIRFENIDONE
     Indication: IDIOPATHIC PULMONARY FIBROSIS
     Route: 048
     Dates: start: 20200910

REACTIONS (6)
  - Pulmonary hypertension [Fatal]
  - Headache [Unknown]
  - Cardiac failure acute [Fatal]
  - Lung neoplasm malignant [Fatal]
  - Interstitial lung disease [Fatal]
  - Mastocytosis [Unknown]

NARRATIVE: CASE EVENT DATE: 20210110
